FAERS Safety Report 9007519 (Version 1)
Quarter: 2013Q1

REPORT INFORMATION
  Report Type: Spontaneous
  Country: IT (occurrence: IT)
  Receive Date: 20130111
  Receipt Date: 20130111
  Transmission Date: 20140127
  Serious: Yes (Hospitalization)
  Sender: FDA-Public Use
  Company Number: IT-BRISTOL-MYERS SQUIBB COMPANY-17271859

PATIENT
  Age: 57 Year
  Sex: Female

DRUGS (5)
  1. COUMADIN TABS 5 MG [Suspect]
     Indication: VERTEBRAL ARTERY DISSECTION
     Dosage: 11AUG-21DEC2012,AGAIN STARTED ON 28DEC12
     Route: 048
     Dates: start: 20120811, end: 20121228
  2. LOSARTAN POTASSIUM [Suspect]
     Indication: HYPERTENSION
     Route: 048
     Dates: start: 20120811, end: 20121221
  3. SERTRALINE HCL [Concomitant]
     Indication: PSYCHOTIC DISORDER
     Route: 048
  4. LORAZEPAM [Concomitant]
     Route: 048
  5. OMEPRAZOLE [Concomitant]
     Route: 048

REACTIONS (2)
  - International normalised ratio increased [Recovered/Resolved]
  - Hypotension [Recovered/Resolved]
